FAERS Safety Report 19522814 (Version 2)
Quarter: 2021Q3

REPORT INFORMATION
  Report Type: Report from Study
  Country: DE (occurrence: DE)
  Receive Date: 20210713
  Receipt Date: 20210720
  Transmission Date: 20211014
  Serious: Yes (Hospitalization)
  Sender: FDA-Public Use
  Company Number: DE-AMGEN-DEUCT2021104464

PATIENT
  Age: 71 Year
  Sex: Male
  Weight: 90 kg

DRUGS (6)
  1. LENALIDOMIDE [Suspect]
     Active Substance: LENALIDOMIDE
     Indication: PLASMA CELL MYELOMA
     Dosage: 5 MILLIGRAM, PER CHEMO REGIM
     Route: 048
     Dates: start: 20190114
  2. METOPROLOL. [Concomitant]
     Active Substance: METOPROLOL
     Indication: HYPERTENSION
     Dosage: 23.75 MILLIGRAM, BID (QD)
     Dates: start: 20200309
  3. CARFILZOMIB [Suspect]
     Active Substance: CARFILZOMIB
     Indication: PLASMA CELL MYELOMA
     Dosage: 72 MILLIGRAM, PER CHEMO REGIM
     Route: 042
     Dates: start: 20190114
  4. MELPHALAN. [Concomitant]
     Active Substance: MELPHALAN
     Dosage: UNK
     Dates: start: 20190726, end: 20190729
  5. DEXAMETHASONE. [Suspect]
     Active Substance: DEXAMETHASONE
     Indication: PLASMA CELL MYELOMA
     Dosage: 20 MILLIGRAM, PER CHEMO REGIM
     Route: 048
     Dates: start: 20190114
  6. HYDROMORPHONE [Concomitant]
     Active Substance: HYDROMORPHONE
     Indication: INTERVERTEBRAL DISC DISORDER
     Dosage: 16 MILLIGRAM, BID
     Route: 048
     Dates: start: 20210401, end: 20210623

REACTIONS (1)
  - Vascular access site infection [Recovered/Resolved]

NARRATIVE: CASE EVENT DATE: 20210624
